FAERS Safety Report 14996843 (Version 1)
Quarter: 2018Q2

REPORT INFORMATION
  Report Type: Spontaneous
  Country: DE (occurrence: DE)
  Receive Date: 20180611
  Receipt Date: 20180611
  Transmission Date: 20180711
  Serious: Yes (Hospitalization)
  Sender: FDA-Public Use
  Company Number: DE-PFIZER INC-2018232197

PATIENT
  Age: 67 Year
  Sex: Male

DRUGS (7)
  1. ASS 100 [Suspect]
     Active Substance: ASPIRIN
     Dosage: 100 MG, UNK
  2. SIMVASTATIN. [Concomitant]
     Active Substance: SIMVASTATIN
     Dosage: 40 MG, 1X/DAY (40 MG, 0-0-1-0)
  3. METOPROLOL. [Concomitant]
     Active Substance: METOPROLOL
     Dosage: 47.5 MG, 2X/DAY (47.5 MG, 1-0-1-0)
  4. IBUPROFEN. [Suspect]
     Active Substance: IBUPROFEN
     Dosage: 800 MG, UNK
  5. METFORMIN [Concomitant]
     Active Substance: METFORMIN HYDROCHLORIDE
     Dosage: 1000/50 MG, 2X/DAY (1000/50 MG, 1-0-1-0)
  6. RAMIPRIL. [Concomitant]
     Active Substance: RAMIPRIL
     Dosage: 0.5 DF, 2X/DAY (5 MG, 0.5-0-0.5-0)
  7. INSULIN [Concomitant]
     Active Substance: INSULIN NOS
     Dosage: UNKNOWN IU, ACCORDING TO BLOOD SUGAR

REACTIONS (1)
  - Haematuria [Unknown]

NARRATIVE: CASE EVENT DATE: 20170427
